FAERS Safety Report 5481214-9 (Version None)
Quarter: 2007Q4

REPORT INFORMATION
  Report Type: 
  Country: None (occurrence: None)
  Receive Date: 20071010
  Receipt Date: 20071002
  Transmission Date: 20080405
  Serious: Yes (Life-Threatening, Hospitalization)
  Sender: FDA-Public Use
  Company Number: FR-JNJFOC-20061100680

PATIENT
  Age: 39 Year
  Sex: Male
  Weight: 72 kg

DRUGS (7)
  1. REMICADE [Suspect]
     Route: 042
  2. REMICADE [Suspect]
     Route: 042
  3. REMICADE [Suspect]
     Indication: POUCHITIS
     Route: 042
  4. REMICADE [Suspect]
     Indication: ANAL STENOSIS
     Route: 042
  5. REMICADE [Suspect]
     Indication: COLITIS ULCERATIVE
     Dosage: 1 INFUSION
     Route: 042
  6. CIFLOX [Concomitant]
     Indication: POUCHITIS
     Dosage: MONTHLY CURES WELL TOLERATED SINCE AT LEAST 2 YEARS
     Route: 065
  7. BETNESOL [Concomitant]
     Indication: POUCHITIS
     Route: 065

REACTIONS (10)
  - ARTHRALGIA [None]
  - CARDIAC DISORDER [None]
  - HENOCH-SCHONLEIN PURPURA [None]
  - HEPATITIS A [None]
  - MULTI-ORGAN FAILURE [None]
  - MYALGIA [None]
  - POUCHITIS [None]
  - RECTAL HAEMORRHAGE [None]
  - RENAL FAILURE ACUTE [None]
  - TYPE IV HYPERSENSITIVITY REACTION [None]
